FAERS Safety Report 8389796-4 (Version None)
Quarter: 2012Q2

REPORT INFORMATION
  Report Type: 
  Country: None (occurrence: None)
  Receive Date: 20120524
  Receipt Date: 20120524
  Transmission Date: 20120825
  Serious: Yes (Hospitalization)
  Sender: FDA-Public Use
  Company Number: None

PATIENT
  Sex: Male
  Weight: 103.3 kg

DRUGS (6)
  1. MERCAPTOPURINE [Suspect]
     Dosage: 3900 MG
  2. CYTARABINE [Suspect]
     Dosage: 2890 MG
  3. CYCLOPHOSPHAMIDE [Suspect]
     Dosage: 4600 MG
  4. METHOTREXATE [Suspect]
     Dosage: 60 MG
  5. PEG-L-ASPARAGINASE (K-H) [Suspect]
     Dosage: 5700 UNIT
  6. VINCRISTINE SULFATE [Suspect]
     Dosage: 4 MG

REACTIONS (10)
  - HAEMOLYSIS [None]
  - DYSGEUSIA [None]
  - RECTAL HAEMORRHAGE [None]
  - THROMBOCYTOPENIA [None]
  - HEADACHE [None]
  - BLOOD BLISTER [None]
  - PETECHIAE [None]
  - ANAEMIA [None]
  - PAPULE [None]
  - ECCHYMOSIS [None]
